FAERS Safety Report 24966122 (Version 2)
Quarter: 2025Q1

REPORT INFORMATION
  Report Type: Spontaneous
  Country: IT (occurrence: IT)
  Receive Date: 20250213
  Receipt Date: 20250306
  Transmission Date: 20250409
  Serious: Yes (Death, Other)
  Sender: BRACCO
  Company Number: None

PATIENT
  Age: 76 Year
  Sex: Male

DRUGS (1)
  1. IOMERON [Suspect]
     Active Substance: IOMEPROL
     Indication: Investigation
     Route: 042
     Dates: start: 20250117, end: 20250117

REACTIONS (8)
  - Dyspnoea [Fatal]
  - Oxygen saturation decreased [Fatal]
  - Pallor [Fatal]
  - Hyperhidrosis [Fatal]
  - Hypotension [Fatal]
  - Hypoxia [Fatal]
  - Hypercapnia [Fatal]
  - Bradycardia [Fatal]

NARRATIVE: CASE EVENT DATE: 20250117
